FAERS Safety Report 13924519 (Version 2)
Quarter: 2017Q3

REPORT INFORMATION
  Report Type: Spontaneous
  Country: CA (occurrence: CA)
  Receive Date: 20170831
  Receipt Date: 20170904
  Transmission Date: 20171127
  Serious: Yes (Hospitalization, Other)
  Sender: FDA-Public Use
  Company Number: CA-TEVA-798642ACC

PATIENT
  Age: 64 Year
  Sex: Female

DRUGS (3)
  1. LEFLUNOMIDE. [Concomitant]
     Active Substance: LEFLUNOMIDE
  2. RISEDRONATE SODIUM. [Suspect]
     Active Substance: RISEDRONATE SODIUM
     Indication: PRODUCT USED FOR UNKNOWN INDICATION
     Route: 065
  3. PREDNISONE. [Suspect]
     Active Substance: PREDNISONE
     Indication: TEMPORAL ARTERITIS
     Dosage: HIGH DOSE
     Route: 065

REACTIONS (1)
  - Osteonecrosis of jaw [Unknown]
